FAERS Safety Report 9772932 (Version 1)
Quarter: 2013Q4

REPORT INFORMATION
  Report Type: Spontaneous
  Country: US (occurrence: None)
  Receive Date: 20131218
  Receipt Date: 20131218
  Transmission Date: 20140711
  Serious: Yes (Other)
  Sender: FDA-Public Use
  Company Number: None

PATIENT
  Age: 15 Year
  Sex: Male
  Weight: 61.9 kg

DRUGS (1)
  1. METHYLPHENIDATE ER [Suspect]
     Indication: ATTENTION DEFICIT/HYPERACTIVITY DISORDER
     Dates: start: 20131101, end: 20131114

REACTIONS (6)
  - Product quality issue [None]
  - Product substitution issue [None]
  - Affect lability [None]
  - Crying [None]
  - Emotional disorder [None]
  - Drug effect decreased [None]
